FAERS Safety Report 6436234-4 (Version None)
Quarter: 2009Q4

REPORT INFORMATION
  Report Type: 
  Country: None (occurrence: None)
  Receive Date: 20091111
  Receipt Date: 20091110
  Transmission Date: 20100525
  Serious: Yes (Congenital Anomaly)
  Sender: FDA-Public Use
  Company Number: A0680664A

PATIENT
  Sex: Female

DRUGS (12)
  1. PAXIL [Suspect]
     Indication: DEPRESSION
     Dosage: 20MG PER DAY
     Dates: start: 20010101, end: 20020601
  2. PAXIL CR [Suspect]
     Indication: DEPRESSION
     Dosage: 25MG PER DAY
     Dates: start: 20020701, end: 20031201
  3. VITAMIN TAB [Concomitant]
  4. CARISOPRODOL [Concomitant]
     Indication: FIBROMYALGIA
     Dates: start: 20010101, end: 20050101
  5. LORTAB [Concomitant]
     Indication: MIGRAINE
     Dates: start: 20030101, end: 20050101
  6. ALPRAZOLAM [Concomitant]
     Indication: ANXIETY
     Dates: start: 20020101, end: 20060101
  7. LORAZEPAM [Concomitant]
  8. WELLBUTRIN SR [Concomitant]
     Indication: DEPRESSION
     Dosage: 150MG PER DAY
     Dates: start: 20030101
  9. HYDROCODONE [Concomitant]
  10. Z PAK [Concomitant]
     Indication: UPPER RESPIRATORY TRACT INFECTION
     Dates: start: 20030330
  11. CEFUROXIME [Concomitant]
  12. MYTUSSIN [Concomitant]

REACTIONS (7)
  - ATRIAL SEPTAL DEFECT [None]
  - ATRIOVENTRICULAR SEPTAL DEFECT [None]
  - DEVELOPMENTAL DELAY [None]
  - DRUG EXPOSURE DURING PREGNANCY [None]
  - MULTIPLE CONGENITAL ABNORMALITIES [None]
  - SPEECH DISORDER DEVELOPMENTAL [None]
  - VENTRICULAR SEPTAL DEFECT [None]
